FAERS Safety Report 16026537 (Version 1)
Quarter: 2019Q1

REPORT INFORMATION
  Report Type: Spontaneous
  Country: US (occurrence: US)
  Receive Date: 20190302
  Receipt Date: 20190302
  Transmission Date: 20190418
  Serious: No
  Sender: FDA-Public Use
  Company Number: US-TARO-2018TAR00902

PATIENT
  Sex: Female
  Weight: 81.63 kg

DRUGS (10)
  1. FLUOCINOLONE ACETONIDE TOPICAL SCALP OIL 0.01% [Suspect]
     Active Substance: FLUOCINOLONE ACETONIDE
     Indication: DANDRUFF
     Dosage: ENOUGH TO COVER AREA ON SCALP, 1X/DAY
     Route: 061
     Dates: start: 201811, end: 201811
  2. KETOCONAZOLE (JANSSEN PHARMACEUTICAL FOR PATRIOT) [Suspect]
     Active Substance: KETOCONAZOLE
  3. FLUOCINOLONE ACETONIDE TOPICAL SCALP OIL 0.01% [Suspect]
     Active Substance: FLUOCINOLONE ACETONIDE
     Dosage: ENOUGH TO COVER AREA ON SCALP, 1X/DAY
     Route: 061
     Dates: start: 20181217, end: 20181217
  4. CLINDAMYCIN PHOSPHATE (TELIGENT) [Suspect]
     Active Substance: CLINDAMYCIN PHOSPHATE
  5. BYSTOLIC [Concomitant]
     Active Substance: NEBIVOLOL HYDROCHLORIDE
  6. FISH OIL [Concomitant]
     Active Substance: FISH OIL
  7. FLUOCINOLONE ACETONIDE TOPICAL SCALP OIL 0.01% [Suspect]
     Active Substance: FLUOCINOLONE ACETONIDE
     Indication: SEBORRHOEIC DERMATITIS
     Dosage: ENOUGH TO COVER AREA ON SCALP, 1X/DAY
     Route: 061
     Dates: start: 20181212, end: 20181212
  8. FLUOCINOLONE ACETONIDE TOPICAL SCALP OIL 0.01% [Suspect]
     Active Substance: FLUOCINOLONE ACETONIDE
     Dosage: ENOUGH TO COVER AREA ON SCALP, 1X/DAY
     Route: 061
     Dates: start: 20181214, end: 20181214
  9. ESTRADIOL. [Concomitant]
     Active Substance: ESTRADIOL
  10. MULTIVITAMIN [Concomitant]
     Active Substance: VITAMINS

REACTIONS (2)
  - Off label use [Recovered/Resolved]
  - Alopecia [Not Recovered/Not Resolved]

NARRATIVE: CASE EVENT DATE: 2018
